FAERS Safety Report 5510306-0 (Version None)
Quarter: 2007Q4

REPORT INFORMATION
  Report Type: 
  Country: None (occurrence: None)
  Receive Date: 20071030
  Receipt Date: 20061026
  Transmission Date: 20080405
  Serious: Yes (Hospitalization)
  Sender: FDA-Public Use
  Company Number: HQWYE696227OCT06

PATIENT
  Sex: Female
  Weight: 59.02 kg

DRUGS (4)
  1. PREMARIN [Suspect]
     Indication: HOT FLUSH
     Dosage: HALF OF A 0.3 MG, TABLET ONCE DAILY, ORAL; THE 1980'S
     Route: 048
     Dates: start: 20060601
  2. NORVASC [Concomitant]
  3. ZANTAC 150 [Concomitant]
  4. CALTRATE (CALCIUM CARBONATE) [Concomitant]

REACTIONS (2)
  - COELIAC DISEASE [None]
  - MIGRAINE [None]
